FAERS Safety Report 20852809 (Version 1)
Quarter: 2022Q2

REPORT INFORMATION
  Report Type: Spontaneous
  Country: US (occurrence: None)
  Receive Date: 20220519
  Receipt Date: 20220519
  Transmission Date: 20220721
  Serious: No
  Sender: FDA-Public Use
  Company Number: None

PATIENT
  Sex: Male

DRUGS (1)
  1. LENALIDOMIDE [Suspect]
     Active Substance: LENALIDOMIDE
     Indication: Plasma cell myeloma
     Dosage: 10MG DAILY ORAL?
     Route: 048
     Dates: start: 202009

REACTIONS (5)
  - Muscle spasms [None]
  - Middle insomnia [None]
  - Muscle spasms [None]
  - Muscle spasms [None]
  - Muscle spasms [None]
